FAERS Safety Report 8384744-5 (Version None)
Quarter: 2012Q2

REPORT INFORMATION
  Report Type: 
  Country: None (occurrence: None)
  Receive Date: 20120524
  Receipt Date: 20120514
  Transmission Date: 20120825
  Serious: Yes (Other)
  Sender: FDA-Public Use
  Company Number: GB-TEVA-338389ISR

PATIENT
  Age: 4 Month

DRUGS (2)
  1. DIAZEPAM [Suspect]
     Route: 064
  2. METHADONE HCL [Suspect]
     Route: 064

REACTIONS (4)
  - CONGENITAL NYSTAGMUS [None]
  - DEVELOPMENTAL DELAY [None]
  - STRABISMUS CONGENITAL [None]
  - CONGENITAL VISUAL ACUITY REDUCED [None]
